FAERS Safety Report 8953091 (Version 2)
Quarter: 2012Q4

REPORT INFORMATION
  Report Type: Report from Study
  Country: CA (occurrence: CA)
  Receive Date: 20121205
  Receipt Date: 20121211
  Transmission Date: 20130627
  Serious: Yes (Other)
  Sender: FDA-Public Use
  Company Number: CA-JNJFOC-20121200800

PATIENT
  Sex: Male

DRUGS (2)
  1. STELARA [Suspect]
     Indication: PSORIASIS
     Dates: start: 201111
  2. STELARA [Suspect]
     Indication: PSORIASIS
     Dates: start: 201209

REACTIONS (1)
  - Lower respiratory tract infection [Unknown]
